FAERS Safety Report 8024021-5 (Version None)
Quarter: 2012Q1

REPORT INFORMATION
  Report Type: 
  Country: None (occurrence: None)
  Receive Date: 20120105
  Receipt Date: 20120103
  Transmission Date: 20120608
  Serious: Yes (Other)
  Sender: FDA-Public Use
  Company Number: US-JNJFOC-20120100806

PATIENT
  Sex: Male
  Weight: 81.19 kg

DRUGS (2)
  1. SIMPONI [Suspect]
     Indication: ANKYLOSING SPONDYLITIS
     Route: 058
     Dates: start: 20090101
  2. FLOMAX [Concomitant]
     Indication: PROSTATOMEGALY

REACTIONS (2)
  - THERAPEUTIC RESPONSE DECREASED [None]
  - DIABETES MELLITUS [None]
